FAERS Safety Report 5419441-9 (Version None)
Quarter: 2007Q3

REPORT INFORMATION
  Report Type: 
  Country: None (occurrence: None)
  Receive Date: 20070820
  Receipt Date: 20070808
  Transmission Date: 20080115
  Serious: Yes (Other)
  Sender: FDA-Public Use
  Company Number: B0482655A

PATIENT
  Age: 49 Year
  Sex: Male

DRUGS (7)
  1. SERETIDE [Suspect]
     Route: 065
     Dates: start: 20070126
  2. ZIAGEN [Suspect]
     Route: 065
     Dates: start: 20070126
  3. NORVIR [Suspect]
     Route: 065
     Dates: start: 20070126
  4. REYATAZ [Suspect]
     Route: 065
     Dates: start: 20070126
  5. VIREAD [Suspect]
     Route: 065
     Dates: start: 20070126
  6. VENTOLIN [Concomitant]
     Route: 065
  7. OMEPRAZOLE [Concomitant]
     Route: 065

REACTIONS (5)
  - ADRENAL INSUFFICIENCY [None]
  - DRUG INTERACTION [None]
  - FATIGUE [None]
  - MYALGIA [None]
  - OEDEMA PERIPHERAL [None]
